FAERS Safety Report 20794282 (Version 1)
Quarter: 2022Q2

REPORT INFORMATION
  Report Type: Spontaneous
  Country: CZ (occurrence: CZ)
  Receive Date: 20220506
  Receipt Date: 20220506
  Transmission Date: 20220720
  Serious: Yes (Death, Life-Threatening, Hospitalization)
  Sender: FDA-Public Use
  Company Number: CZ-STRIDES ARCOLAB LIMITED-2022SP005002

PATIENT
  Age: 44 Year
  Sex: Male

DRUGS (1)
  1. VERAPAMIL [Suspect]
     Active Substance: VERAPAMIL HYDROCHLORIDE
     Indication: Product used for unknown indication
     Dosage: 240 MILLIGRAM (TABLET), INGESTED EXCEEDED MORE THAN SEVEN TIMES THE LETHAL DOSE
     Route: 048

REACTIONS (15)
  - Cardiac arrest [Fatal]
  - Bradycardia [Fatal]
  - Hypotension [Fatal]
  - Intentional overdose [Fatal]
  - Toxicity to various agents [Fatal]
  - Suicide attempt [Fatal]
  - Junctional ectopic tachycardia [Fatal]
  - Alkalosis hypochloraemic [Recovered/Resolved]
  - Hypokalaemia [Recovered/Resolved]
  - Vomiting [Unknown]
  - Polyuria [Unknown]
  - Cardiomyopathy [Not Recovered/Not Resolved]
  - Renal failure [Unknown]
  - Somnolence [Unknown]
  - Nausea [Unknown]
